FAERS Safety Report 7130239-6 (Version None)
Quarter: 2010Q4

REPORT INFORMATION
  Report Type: 
  Country: None (occurrence: None)
  Receive Date: 20101201
  Receipt Date: 20101129
  Transmission Date: 20110411
  Serious: Yes (Other)
  Sender: FDA-Public Use
  Company Number: PHHY2010BR39834

PATIENT
  Sex: Female

DRUGS (1)
  1. PARLODEL [Suspect]

REACTIONS (9)
  - ASTHENIA [None]
  - BLOOD PROLACTIN INCREASED [None]
  - DARK CIRCLES UNDER EYES [None]
  - DEPRESSION [None]
  - DRUG DOSE OMISSION [None]
  - FALL [None]
  - FEMUR FRACTURE [None]
  - MALAISE [None]
  - VISUAL IMPAIRMENT [None]
